FAERS Safety Report 18112716 (Version 1)
Quarter: 2020Q3

REPORT INFORMATION
  Report Type: Spontaneous
  Country: US (occurrence: US)
  Receive Date: 20200804
  Receipt Date: 20200804
  Transmission Date: 20201103
  Serious: Yes (Life-Threatening)
  Sender: FDA-Public Use
  Company Number: None

PATIENT
  Age: 6 Year
  Sex: Male
  Weight: 31.5 kg

DRUGS (2)
  1. MONTELUKAST [Suspect]
     Active Substance: MONTELUKAST SODIUM
     Indication: BRONCHITIS CHRONIC
     Route: 048
     Dates: start: 20200220, end: 20200521
  2. MONTELUKAST [Suspect]
     Active Substance: MONTELUKAST SODIUM
     Indication: URTICARIA
     Route: 048
     Dates: start: 20200220, end: 20200521

REACTIONS (5)
  - Thinking abnormal [None]
  - Disturbance in attention [None]
  - Abnormal behaviour [None]
  - Aggression [None]
  - Weight increased [None]

NARRATIVE: CASE EVENT DATE: 20200601
